FAERS Safety Report 18453473 (Version 3)
Quarter: 2021Q2

REPORT INFORMATION
  Report Type: Report from Study
  Country: CA (occurrence: CA)
  Receive Date: 20201102
  Receipt Date: 20210420
  Transmission Date: 20210717
  Serious: Yes (Hospitalization, Other)
  Sender: FDA-Public Use
  Company Number: CA-JNJFOC-20201039931

PATIENT
  Age: 34 Year
  Sex: Female

DRUGS (3)
  1. METRONIDAZOLE. [Suspect]
     Active Substance: METRONIDAZOLE
     Indication: COLECTOMY
     Dosage: FOR 3 MONTHS
     Route: 065
     Dates: start: 20201006
  2. CEPHALEXIN                         /00145501/ [Suspect]
     Active Substance: CEPHALEXIN
     Indication: POSTOPERATIVE WOUND INFECTION
     Dosage: DAILY FOR 7 DAYS
     Route: 065
     Dates: start: 20201022
  3. REMICADE [Suspect]
     Active Substance: INFLIXIMAB
     Indication: CROHN^S DISEASE
     Route: 042

REACTIONS (3)
  - Colectomy [Unknown]
  - Postoperative wound infection [Unknown]
  - Sluggishness [Unknown]

NARRATIVE: CASE EVENT DATE: 20200930
